FAERS Safety Report 9120373 (Version 1)
Quarter: 2013Q1

REPORT INFORMATION
  Report Type: Spontaneous
  Country: FR (occurrence: FR)
  Receive Date: 20130226
  Receipt Date: 20130226
  Transmission Date: 20140127
  Serious: Yes (Death, Congenital Anomaly, Other)
  Sender: FDA-Public Use
  Company Number: FR-PFIZER INC-2013066075

PATIENT
  Sex: Male

DRUGS (2)
  1. ZOLOFT [Suspect]
     Dosage: UNK
     Route: 064
     Dates: start: 201207, end: 20121008
  2. LAMICTAL [Suspect]
     Dosage: 50 MG, DAILY
     Route: 064
     Dates: start: 201207, end: 20121008

REACTIONS (15)
  - Maternal exposure timing unspecified [Unknown]
  - Multiple congenital abnormalities [Fatal]
  - Congenital musculoskeletal anomaly [Not Recovered/Not Resolved]
  - Limb reduction defect [Not Recovered/Not Resolved]
  - Spinal disorder [Not Recovered/Not Resolved]
  - Bone disorder [Not Recovered/Not Resolved]
  - Hypotelorism of orbit [Not Recovered/Not Resolved]
  - Spina bifida [Not Recovered/Not Resolved]
  - Spinal deformity [Not Recovered/Not Resolved]
  - Gastrointestinal disorder [Not Recovered/Not Resolved]
  - Duodenal atresia [Not Recovered/Not Resolved]
  - Renal aplasia [Not Recovered/Not Resolved]
  - Arterial disorder [Not Recovered/Not Resolved]
  - Vascular anomaly [Not Recovered/Not Resolved]
  - Spinal deformity [Not Recovered/Not Resolved]
